FAERS Safety Report 7788374-5 (Version None)
Quarter: 2011Q3

REPORT INFORMATION
  Report Type: 
  Country: None (occurrence: None)
  Receive Date: 20110930
  Receipt Date: 20110920
  Transmission Date: 20111222
  Serious: Yes (Hospitalization)
  Sender: FDA-Public Use
  Company Number: US-US-EMD SERONO, INC.-7066811

PATIENT
  Sex: Male
  Weight: 64 kg

DRUGS (4)
  1. IBUPROFEN [Concomitant]
  2. ASPIRIN [Concomitant]
  3. REBIF [Suspect]
     Indication: MULTIPLE SCLEROSIS
     Route: 058
     Dates: start: 20090911
  4. BACLOFEN [Concomitant]
     Indication: MUSCLE SPASTICITY

REACTIONS (3)
  - JOINT SWELLING [None]
  - LUNG NEOPLASM MALIGNANT [None]
  - NEUROENDOCRINE CARCINOMA [None]
